FAERS Safety Report 16232143 (Version 1)
Quarter: 2019Q2

REPORT INFORMATION
  Report Type: Spontaneous
  Country: CA (occurrence: CA)
  Receive Date: 20190424
  Receipt Date: 20190424
  Transmission Date: 20190711
  Serious: Yes (Other)
  Sender: FDA-Public Use
  Company Number: CA-AMGEN-CANSP2019062174

PATIENT
  Age: 84 Year
  Sex: Female

DRUGS (1)
  1. REPATHA [Suspect]
     Active Substance: EVOLOCUMAB
     Indication: BLOOD CHOLESTEROL ABNORMAL
     Dosage: UNK
     Route: 058

REACTIONS (5)
  - Skin lesion removal [Unknown]
  - Skin lesion [Unknown]
  - Arthralgia [Unknown]
  - Chronic lymphocytic leukaemia [Unknown]
  - Abdominal distension [Unknown]
